FAERS Safety Report 6746063-X (Version None)
Quarter: 2010Q2

REPORT INFORMATION
  Report Type: 
  Country: None (occurrence: None)
  Receive Date: 20100526
  Receipt Date: 20100520
  Transmission Date: 20101027
  Serious: Yes (Other)
  Sender: FDA-Public Use
  Company Number: A0860540A

PATIENT
  Age: 65 Year
  Sex: Female

DRUGS (1)
  1. METHYLCELLULOSE CAPLET (METHYLCELLULOSE) [Suspect]
     Indication: DRUG USE FOR UNKNOWN INDICATION

REACTIONS (2)
  - CHOKING [None]
  - RETCHING [None]
